FAERS Safety Report 12715735 (Version 3)
Quarter: 2016Q4

REPORT INFORMATION
  Report Type: Spontaneous
  Country: US (occurrence: US)
  Receive Date: 20160906
  Receipt Date: 20161123
  Transmission Date: 20170207
  Serious: No
  Sender: FDA-Public Use
  Company Number: US-PFIZER INC-2016327116

PATIENT
  Age: 52 Year
  Sex: Male

DRUGS (1)
  1. XELJANZ XR [Suspect]
     Active Substance: TOFACITINIB CITRATE
     Indication: RHEUMATOID ARTHRITIS
     Dosage: 11 MG, DAILY
     Route: 048

REACTIONS (6)
  - Ecchymosis [Unknown]
  - Contusion [Unknown]
  - Arthralgia [Unknown]
  - Muscle spasms [Unknown]
  - Ligament sprain [Unknown]
  - Abdominal pain upper [Unknown]
